FAERS Safety Report 21217354 (Version 1)
Quarter: 2022Q3

REPORT INFORMATION
  Report Type: Spontaneous
  Country: US (occurrence: None)
  Receive Date: 20220816
  Receipt Date: 20220816
  Transmission Date: 20221027
  Serious: No
  Sender: FDA-Public Use
  Company Number: None

PATIENT
  Age: 43 Year
  Sex: Female
  Weight: 96.1 kg

DRUGS (1)
  1. VENOFER [Suspect]
     Active Substance: IRON SUCROSE
     Indication: Iron deficiency anaemia
     Dates: start: 20220623, end: 20220812

REACTIONS (4)
  - Infusion site swelling [None]
  - Infusion site discolouration [None]
  - Infusion site pain [None]
  - Infusion site pain [None]

NARRATIVE: CASE EVENT DATE: 20220812
